FAERS Safety Report 4437640-X (Version None)
Quarter: 2004Q3

REPORT INFORMATION
  Report Type: 
  Country: None (occurrence: None)
  Receive Date: 20040831
  Receipt Date: 20040824
  Transmission Date: 20050211
  Serious: Yes (Other)
  Sender: FDA-Public Use
  Company Number: PHEH2004US09185

PATIENT
  Sex: Female

DRUGS (1)
  1. MIACALCIN [Suspect]
     Route: 065
     Dates: start: 20020101

REACTIONS (1)
  - NEPHROLITHIASIS [None]
